FAERS Safety Report 5871333-7 (Version None)
Quarter: 2008Q3

REPORT INFORMATION
  Report Type: 
  Country: None (occurrence: None)
  Receive Date: 20080902
  Receipt Date: 20080724
  Transmission Date: 20090109
  Serious: Yes (Hospitalization)
  Sender: FDA-Public Use
  Company Number: 2008S1005428

PATIENT
  Age: 67 Year
  Sex: Female

DRUGS (6)
  1. PHOSPHOSODA FLAVOR NOT SPECIFIED (SODIUM PHOSPHATE DIBASIC/SODIUM PHOS [Suspect]
     Indication: COLONOSCOPY
     Dosage: 45 ML;UNK;PO;UNK
     Route: 048
     Dates: start: 20080414, end: 20080415
  2. LEVOTHYROXINE SODIUM [Concomitant]
  3. CANDESARTAN CILEXETIL [Concomitant]
  4. LYRICA (BEING QUERIED) [Concomitant]
  5. SIMVASTATIN [Concomitant]
  6. ASPIRIN [Concomitant]

REACTIONS (4)
  - COMA [None]
  - CONFUSIONAL STATE [None]
  - CONVULSION [None]
  - MINERAL DEFICIENCY [None]
